FAERS Safety Report 24042999 (Version 1)
Quarter: 2024Q3

REPORT INFORMATION
  Report Type: Spontaneous
  Country: NZ (occurrence: None)
  Receive Date: 20240702
  Receipt Date: 20240702
  Transmission Date: 20241016
  Serious: Yes (Other)
  Sender: ASTRAZENECA
  Company Number: 2024A151056

PATIENT
  Age: 66 Year
  Sex: Female

DRUGS (23)
  1. ROSUVASTATIN [Suspect]
     Active Substance: ROSUVASTATIN
     Dates: start: 202312
  2. CODEINE [Concomitant]
     Active Substance: CODEINE
  3. MICONAZOLE ORAL GEL [Concomitant]
  4. ONDANSETRON [Concomitant]
     Active Substance: ONDANSETRON
  5. PREDNISONE [Concomitant]
     Active Substance: PREDNISONE
  6. PROCHLORPERAZINE HYDROCHLORIDE/PARACETAMOL/CAFFEINE/ERGOTAMINE TARTRAT [Concomitant]
  7. MYCOPHENOLIC ACID [Concomitant]
     Active Substance: MYCOPHENOLIC ACID
  8. ACETAMINOPHEN [Concomitant]
     Active Substance: ACETAMINOPHEN
  9. ZOPICLONE [Concomitant]
     Active Substance: ZOPICLONE
  10. FERROUS BISGLYCINATE/RETINOL PALMITATE/NICOTINAMIDE/CALCIUM PANTOTHENA [Concomitant]
  11. DOCUSATE/DIASTASE/LIPASE/SODIUM TAUROCHOLATE/ALPHA-AMYLASE SWINE PANCR [Concomitant]
  12. GLYCERYL TRINITRATE ORAL SPRAY [Concomitant]
  13. HYDROXYCHLOROQUINE [Concomitant]
     Active Substance: HYDROXYCHLOROQUINE
  14. LISINOPRIL [Concomitant]
     Active Substance: LISINOPRIL
  15. AMBROXOL HYDROCHLORIDE/DESLORATADINE [Concomitant]
  16. FLUPENTIXOL/NORTRIPTYLINE [Concomitant]
  17. OMEPRAZOLE [Concomitant]
     Active Substance: OMEPRAZOLE
  18. TICAGRELOR [Concomitant]
     Active Substance: TICAGRELOR
  19. DIHYDROCODEINE [Concomitant]
     Active Substance: DIHYDROCODEINE
  20. ERGOTAMINE/LORAZEPAM/CAFFEINE [Concomitant]
  21. GLYCYRRHIZA GLABRA/AMMONIUM CHLORIDE/METHENAMINE [Concomitant]
  22. ESTIROL CREAM [Concomitant]
  23. METOPROLOL [Concomitant]
     Active Substance: METOPROLOL

REACTIONS (2)
  - Acute kidney injury [Unknown]
  - Rhabdomyolysis [Unknown]
